FAERS Safety Report 7717562-9 (Version None)
Quarter: 2011Q3

REPORT INFORMATION
  Report Type: 
  Country: None (occurrence: None)
  Receive Date: 20110824
  Receipt Date: 20110513
  Transmission Date: 20111222
  Serious: Yes (Hospitalization)
  Sender: FDA-Public Use
  Company Number: UTC-007154

PATIENT
  Age: 66 Year
  Sex: Male
  Weight: 88 kg

DRUGS (6)
  1. ASPIRIN [Concomitant]
  2. COUMADIN [Concomitant]
  3. ADCIRCA [Concomitant]
  4. REMODULIN [Suspect]
     Indication: PULMONARY ARTERIAL HYPERTENSION
     Dosage: 86.4 UG/KG (0.06 UG/KG, 1 IN 1 MIN), (INTRAVENOUS)
     Route: 042
     Dates: start: 20090925
  5. DIURETICS (DIURETICS) [Concomitant]
  6. LITHIUM CARBONATE [Concomitant]

REACTIONS (7)
  - DYSPNOEA [None]
  - VOMITING [None]
  - HEADACHE [None]
  - DIZZINESS [None]
  - NAUSEA [None]
  - ANAEMIA [None]
  - APHAGIA [None]
